FAERS Safety Report 16290376 (Version 2)
Quarter: 2019Q2

REPORT INFORMATION
  Report Type: Spontaneous
  Country: US (occurrence: US)
  Receive Date: 20190509
  Receipt Date: 20190529
  Transmission Date: 20190711
  Serious: No
  Sender: FDA-Public Use
  Company Number: US-ASTRAZENECA-2019SE68079

PATIENT
  Sex: Male
  Weight: 150.6 kg

DRUGS (6)
  1. METOPROLOL. [Suspect]
     Active Substance: METOPROLOL
     Indication: HEART RATE ABNORMAL
     Dosage: TWO TIMES A DAY
     Route: 048
     Dates: start: 2018
  2. BYDUREON [Suspect]
     Active Substance: EXENATIDE
     Indication: GLYCOSYLATED HAEMOGLOBIN
     Route: 058
     Dates: start: 2018
  3. INSULIN [Concomitant]
     Active Substance: INSULIN NOS
  4. BYDUREON [Suspect]
     Active Substance: EXENATIDE
     Indication: APPETITE DISORDER
     Route: 058
     Dates: start: 2018
  5. LISINOPRIL. [Suspect]
     Active Substance: LISINOPRIL
     Indication: HEART RATE ABNORMAL
     Dosage: AT NIGHT
     Route: 048
  6. ATORVASTATIN [Concomitant]
     Active Substance: ATORVASTATIN

REACTIONS (5)
  - Circumstance or information capable of leading to medication error [Unknown]
  - Drug ineffective [Unknown]
  - Device issue [Unknown]
  - Injection site mass [Unknown]
  - Heart rate increased [Unknown]
